FAERS Safety Report 16321460 (Version 1)
Quarter: 2019Q2

REPORT INFORMATION
  Report Type: Report from Study
  Country: IT (occurrence: IT)
  Receive Date: 20190516
  Receipt Date: 20190516
  Transmission Date: 20190711
  Serious: Yes (Hospitalization)
  Sender: FDA-Public Use
  Company Number: IT-TEVA-2019-IT-1050006

PATIENT
  Age: 63 Year
  Sex: Female

DRUGS (1)
  1. ALLOPURINOL. [Suspect]
     Active Substance: ALLOPURINOL
     Indication: HYPERURICAEMIA
     Dosage: 100 MILLIGRAM FOR EVERY 1 DAYS
     Route: 048
     Dates: start: 20190323, end: 20190427

REACTIONS (5)
  - Transaminases increased [Unknown]
  - Rash maculo-papular [Unknown]
  - Face oedema [Unknown]
  - Rash erythematous [Unknown]
  - Lymphadenopathy [Unknown]

NARRATIVE: CASE EVENT DATE: 20190417
